FAERS Safety Report 5286854-8 (Version None)
Quarter: 2007Q2

REPORT INFORMATION
  Report Type: 
  Country: None (occurrence: None)
  Receive Date: 20070404
  Receipt Date: 20070330
  Transmission Date: 20071010
  Serious: Yes (Hospitalization)
  Sender: FDA-Public Use
  Company Number: GB-BOEHRINGER INGELHEIM PHARMACEUTICALS, INC.-2007-UK-01068UK

PATIENT
  Age: 79 Year
  Sex: Female

DRUGS (11)
  1. PERSANTIN (00015/0052R) [Suspect]
     Indication: PROPHYLAXIS
     Dosage: 200MG BD
     Route: 048
     Dates: end: 20070309
  2. ASPIRIN [Suspect]
     Indication: CEREBROVASCULAR ACCIDENT
     Route: 048
     Dates: end: 20070309
  3. ASPIRIN [Suspect]
     Indication: MYOCARDIAL INFARCTION
  4. ALENDRONIC ACID [Concomitant]
     Indication: OSTEOPOROSIS
     Dosage: 70MG 1/1WEEK
     Route: 048
  5. BUMETANIDE [Concomitant]
     Indication: HYPERTENSION
     Route: 048
  6. CALCICHEW D3 [Concomitant]
     Indication: OSTEOPOROSIS
     Dosage: 1 DF
     Route: 048
  7. COMBIVENT [Concomitant]
     Indication: ASTHMA
     Dosage: 1 DF 4 X DAILY
     Route: 055
  8. RAMIPRIL [Concomitant]
     Indication: HYPERTENSION
     Route: 048
  9. SERETIDE [Concomitant]
     Indication: ASTHMA
     Dosage: 2DF X 2 DAILY
     Route: 055
  10. SIMVASTATIN [Concomitant]
     Indication: HYPERCHOLESTEROLAEMIA
     Route: 048
  11. TRAMADOL HCL [Concomitant]
     Indication: PAIN
     Dosage: 100MG X 4 DAILY
     Route: 048
     Dates: end: 20070309

REACTIONS (2)
  - DUODENAL ULCER [None]
  - GASTROINTESTINAL HAEMORRHAGE [None]
